FAERS Safety Report 4307824-X (Version None)
Quarter: 2004Q1

REPORT INFORMATION
  Report Type: 
  Country: None (occurrence: None)
  Receive Date: 20040225
  Receipt Date: 20030313
  Transmission Date: 20041129
  Serious: Yes (Other)
  Sender: FDA-Public Use
  Company Number: WAES 0303USA01367

PATIENT

DRUGS (1)
  1. ZOCOR [Suspect]
     Dosage: 40 MG/HS/PO
     Route: 048

REACTIONS (1)
  - RHABDOMYOLYSIS [None]
